FAERS Safety Report 18903274 (Version 2)
Quarter: 2021Q2

REPORT INFORMATION
  Report Type: Report from Study
  Country: None (occurrence: US)
  Receive Date: 20210216
  Receipt Date: 20210526
  Transmission Date: 20210717
  Serious: Yes (Hospitalization)
  Sender: FDA-Public Use
  Company Number: US-ABBVIE-21K-163-3776451-00

PATIENT
  Sex: Female

DRUGS (2)
  1. HUMIRA [Suspect]
     Active Substance: ADALIMUMAB
     Indication: PSORIATIC ARTHROPATHY
     Route: 058
     Dates: start: 20201105, end: 2021
  2. HUMIRA [Suspect]
     Active Substance: ADALIMUMAB
     Route: 058
     Dates: start: 2021

REACTIONS (12)
  - Psoriasis [Recovered/Resolved]
  - Wrong technique in product usage process [Unknown]
  - Road traffic accident [Unknown]
  - Gait disturbance [Unknown]
  - Injection site bruising [Recovered/Resolved]
  - Emotional distress [Recovered/Resolved]
  - Therapeutic response shortened [Unknown]
  - Psoriasis [Unknown]
  - Pulmonary thrombosis [Unknown]
  - Upper limb fracture [Unknown]
  - Back pain [Unknown]
  - Pain [Not Recovered/Not Resolved]

NARRATIVE: CASE EVENT DATE: 2021
